FAERS Safety Report 8790597 (Version 1)
Quarter: 2012Q4

REPORT INFORMATION
  Report Type: Spontaneous
  Country: DE (occurrence: None)
  Receive Date: 20120905
  Receipt Date: 20120905
  Transmission Date: 20130627
  Serious: Yes (Other)
  Sender: FDA-Public Use
  Company Number: EU-2011-10169

PATIENT
  Sex: Male

DRUGS (9)
  1. SAMSCA (TOLVAPTAN) TABLET [Suspect]
     Indication: HYPONATRAEMIA
     Dosage: 7,5 mg (milligram(s), daily dose, oral
     Route: 048
     Dates: start: 20110510, end: 20110511
  2. NATRILIX (INDAPAMIDE) [Concomitant]
  3. PENTALONG (PENTAERITHYL TETRANITRATE) [Concomitant]
  4. RAMIPRIL (RAMIPRIL) [Concomitant]
  5. PANTOPRAZOLE SODIUM (PANTOPRAZOLE SODIUM) [Concomitant]
  6. PROCORALAN (IVABRADINE HYDROCHLORIDE) [Concomitant]
  7. KALINOR (CITRIC ACID, POTAASSIUM BICARBONATE, POTASSIUM CITRATE) [Concomitant]
  8. PREDNISOLON (PREDNISOLON) [Concomitant]
  9. IBUPROFEN (IBUPROFEN) [Concomitant]

REACTIONS (3)
  - Rapid correction of hyponatraemia [None]
  - Blood sodium decreased [None]
  - Wrong technique in drug usage process [None]
